FAERS Safety Report 16828548 (Version 2)
Quarter: 2019Q3

REPORT INFORMATION
  Report Type: Spontaneous
  Country: FI (occurrence: FI)
  Receive Date: 20190919
  Receipt Date: 20190923
  Transmission Date: 20191005
  Serious: Yes (Other)
  Sender: FDA-Public Use
  Company Number: PHHY2019FI215639

PATIENT
  Sex: Female

DRUGS (1)
  1. NEVANAC [Suspect]
     Active Substance: NEPAFENAC
     Indication: PRODUCT USED FOR UNKNOWN INDICATION
     Route: 065

REACTIONS (6)
  - Dry eye [Not Recovered/Not Resolved]
  - Contraindicated product prescribed [Unknown]
  - Corneal oedema [Not Recovered/Not Resolved]
  - Corneal infection [Unknown]
  - Eye pain [Not Recovered/Not Resolved]
  - Corneal irritation [Unknown]
